FAERS Safety Report 6661249-0 (Version None)
Quarter: 2010Q1

REPORT INFORMATION
  Report Type: 
  Country: None (occurrence: None)
  Receive Date: 20100331
  Receipt Date: 20100324
  Transmission Date: 20100710
  Serious: Yes (Hospitalization)
  Sender: FDA-Public Use
  Company Number: DE-ROCHE-657137

PATIENT
  Sex: Female
  Weight: 66 kg

DRUGS (18)
  1. METHOXY POLYETHYLENE GLYCOL-EPOETIN BETA [Suspect]
     Dosage: FORM:PFS
     Route: 042
  2. FERRLECIT [Concomitant]
     Dosage: REPORTED; 62.5 MG EISEN MO (MO)
  3. ALFACALCIDOL [Concomitant]
     Dosage: REPORTED: 1 KPS ORAL MO-MI (MO.MI)
  4. DEKRISTOL [Concomitant]
     Dosage: REPORTED: 1 KPS ORAL 4 WOCHIG MO
  5. CALCIUMCARBONAT [Concomitant]
     Dosage: FREQUENCY: 0-2-2-0
  6. BETA-ACETYLDIGOXIN [Concomitant]
     Dosage: FREQUENCY: 9/WOCHE
  7. SIMVASTATIN [Concomitant]
     Dosage: FREQUENCY: 0-0-0-1/2
  8. ACETYLSALISYLSYRE [Concomitant]
     Dosage: DRUG: ACETYLSALICYLSEURE, FREQUENCY:1-0-0-0 PRIVAT
  9. FUROSEMID [Concomitant]
     Dosage: 1/4-1/-0-0WO-ENDE
  10. ALLOPURINOL [Concomitant]
     Dosage: FREQUENCY: 1-0-0-0
  11. OMEPRAZOLE [Concomitant]
     Dosage: 0-0-0-2
  12. INSULIN [Concomitant]
     Dosage: DRUG: INSULIN,NORMAL(HUMAN), FREQUENCY:3XTGL NACH BZ
  13. INSULINE ISOPHANE [Concomitant]
     Dosage: DRUG: INSULIN-ISOPHAN(HUAMN), FREQUENCY: 2XTGL ANCH BZ
  14. SOTALOL HYDROCHLORID [Concomitant]
     Dosage: FREQUENCY: 1/2 AM NI-HD-TAG
  15. SOTALOL HYDROCHLORID [Concomitant]
     Dates: start: 20090904
  16. TRAMADOL HYDROCHLORID [Concomitant]
     Dosage: FREQUENCY: N. BED
  17. LOPERAMIDE [Concomitant]
     Dosage: FREQUENCY; N. BED
  18. DIGOXIN [Concomitant]
     Dates: start: 20060904

REACTIONS (1)
  - VERTIGO [None]
